FAERS Safety Report 10032775 (Version 2)
Quarter: 2014Q2

REPORT INFORMATION
  Report Type: Report from Study
  Country: IT (occurrence: IT)
  Receive Date: 20140324
  Receipt Date: 20140523
  Transmission Date: 20141212
  Serious: Yes (Hospitalization)
  Sender: FDA-Public Use
  Company Number: IT-INCYTE CORPORATION-2014IN000704

PATIENT
  Sex: 0

DRUGS (1)
  1. CINC424B2301 [Suspect]
     Indication: POLYCYTHAEMIA VERA
     Dosage: 15 MG, BID
     Route: 048
     Dates: start: 20130809, end: 20140310

REACTIONS (1)
  - Transient ischaemic attack [Recovered/Resolved]
